FAERS Safety Report 6644584-1 (Version None)
Quarter: 2010Q1

REPORT INFORMATION
  Report Type: 
  Country: None (occurrence: None)
  Receive Date: 20100318
  Receipt Date: 20100318
  Transmission Date: 20100710
  Serious: Yes (Hospitalization)
  Sender: FDA-Public Use
  Company Number: None

PATIENT
  Sex: Female
  Weight: 66.4 kg

DRUGS (5)
  1. DAUNORUBICIN HCL [Suspect]
     Dosage: 126 MG
  2. METHOTREXATE [Suspect]
     Dosage: 15 MG
  3. METHYLPREDNISOLONE [Suspect]
     Dosage: 1938 MG
  4. VINCRISTINE [Suspect]
     Dosage: 6 MG
  5. CYTARABINE [Suspect]
     Dosage: 70 MG

REACTIONS (5)
  - DIZZINESS [None]
  - HYPOTENSION [None]
  - NAUSEA [None]
  - NEUTROPENIA [None]
  - VOMITING [None]
